FAERS Safety Report 4285473-X (Version None)
Quarter: 2004Q1

REPORT INFORMATION
  Report Type: 
  Country: None (occurrence: None)
  Receive Date: 20040202
  Receipt Date: 20040121
  Transmission Date: 20041129
  Serious: Yes (Hospitalization)
  Sender: FDA-Public Use
  Company Number: SE-JNJFOC-20040104412

PATIENT
  Age: 73 Year
  Sex: Female

DRUGS (10)
  1. REMICADE [Suspect]
     Indication: RHEUMATOID ARTHRITIS
     Dosage: 200 MG, INTRAVENOUS
     Route: 042
     Dates: start: 20030401, end: 20030911
  2. METHOTREXATE [Suspect]
     Indication: RHEUMATOID ARTHRITIS
  3. ALVEDON (PARACETAMOL) [Concomitant]
  4. SALURES (BENDROFLUMETHIAZIDE) [Concomitant]
  5. AZATHIOPRINE [Concomitant]
  6. PREDNISOLONE [Concomitant]
  7. K CL TAB [Concomitant]
  8. KLIOGEST (KLIOGEST ^NOVO INDUSTRI^) [Concomitant]
  9. TROMBYL (ACETYLSALICYLIC ACID) [Concomitant]
  10. CALCICHEW (CALCIUM CARBONATE) [Concomitant]

REACTIONS (7)
  - BACK PAIN [None]
  - BLOOD PRESSURE DECREASED [None]
  - COUGH [None]
  - FIBROSIS [None]
  - FLUSHING [None]
  - INFUSION RELATED REACTION [None]
  - MYALGIA [None]
